FAERS Safety Report 7503590-5 (Version None)
Quarter: 2011Q1

REPORT INFORMATION
  Report Type: 
  Country: None (occurrence: None)
  Receive Date: 20110322
  Receipt Date: 20110104
  Transmission Date: 20110831
  Serious: Yes (Hospitalization)
  Sender: FDA-Public Use
  Company Number: UTC-003961

PATIENT
  Age: 45 Year
  Sex: Male
  Weight: 78 kg

DRUGS (3)
  1. TRACLEER [Concomitant]
  2. ADCIRCA [Concomitant]
  3. TYVASO [Suspect]
     Dosage: 120 MCG (30 MCG, 4 IN 1 D), INHALATION
     Route: 055
     Dates: start: 20101025, end: 20101218

REACTIONS (4)
  - FATIGUE [None]
  - COUGH [None]
  - HAEMOPTYSIS [None]
  - ASTHENIA [None]
